FAERS Safety Report 8166816-3 (Version None)
Quarter: 2012Q1

REPORT INFORMATION
  Report Type: 
  Country: None (occurrence: None)
  Receive Date: 20120227
  Receipt Date: 20120222
  Transmission Date: 20120608
  Serious: No
  Sender: FDA-Public Use
  Company Number: US-TEVA-324330USA

PATIENT
  Sex: Female

DRUGS (2)
  1. PLAN B ONE-STEP [Suspect]
     Indication: POST COITAL CONTRACEPTION
     Dosage: 1.5 MILLIGRAM;
     Route: 048
     Dates: start: 20120219, end: 20120219
  2. PRISTIQ [Concomitant]
     Indication: DEPRESSION

REACTIONS (2)
  - DYSMENORRHOEA [None]
  - MENSTRUATION IRREGULAR [None]
